FAERS Safety Report 23361413 (Version 1)
Quarter: 2024Q1

REPORT INFORMATION
  Report Type: Spontaneous
  Country: US (occurrence: None)
  Receive Date: 20240102
  Receipt Date: 20240102
  Transmission Date: 20240409
  Serious: Yes (Other)
  Sender: FDA-Public Use
  Company Number: None

PATIENT
  Age: 55 Year
  Sex: Female
  Weight: 115.2 kg

DRUGS (13)
  1. INSULIN LISPRO [Suspect]
     Active Substance: INSULIN LISPRO
     Indication: Type 2 diabetes mellitus
     Dosage: FREQUENCY : 3 TIMES A DAY;?
     Route: 058
     Dates: start: 20220124, end: 20220213
  2. Albuterol HFA 108 mcg/act Inhaler [Concomitant]
     Dates: start: 20210810
  3. Amoxicillin-Clavulunate 875-125 mg tablet [Concomitant]
     Dates: start: 20220113, end: 20220123
  4. Ciprofloxaxin 500 mg tablet [Concomitant]
     Dates: start: 20220111, end: 20220118
  5. dulaglutide 4.5 mg Pen Injector [Concomitant]
     Dates: start: 20210820
  6. Famotidine 20 mg tablet [Concomitant]
     Dates: start: 20211025, end: 20230311
  7. Fluconazole 150 mg tablet [Concomitant]
     Dates: start: 20220111
  8. Glyburide-Metformin 5-500 mg tablet [Concomitant]
     Dates: start: 20210729
  9. Insulin detemir 100 unit/mL Injection [Concomitant]
     Dates: start: 20211210
  10. Levocetirizine 5 mg tablet [Concomitant]
     Dates: start: 20211006
  11. MICONAZOLE [Concomitant]
     Active Substance: MICONAZOLE
     Dates: start: 20211209
  12. MONTELUKAST SODIUM [Concomitant]
     Active Substance: MONTELUKAST SODIUM
     Dates: start: 20210820, end: 20221026
  13. MUPIROCIN [Concomitant]
     Active Substance: MUPIROCIN
     Dates: start: 20210820

REACTIONS (3)
  - Swelling [None]
  - Pruritus [None]
  - Injection related reaction [None]

NARRATIVE: CASE EVENT DATE: 20220213
